FAERS Safety Report 9177573 (Version 1)
Quarter: 2013Q1

REPORT INFORMATION
  Report Type: Other
  Country: CA (occurrence: CA)
  Receive Date: 20130321
  Receipt Date: 20130321
  Transmission Date: 20140127
  Serious: Yes (Hospitalization)
  Sender: FDA-Public Use
  Company Number: CA-NAPPMUNDI-CAN-2013-0003908

PATIENT
  Sex: Male
  Weight: 108 kg

DRUGS (2)
  1. OXYCONTIN TABLETS [Suspect]
     Indication: BACK PAIN
     Dosage: 80 MG, QID
     Dates: start: 2000
  2. OXYCONTIN TABLETS [Suspect]
     Indication: ARTHRITIS

REACTIONS (1)
  - Myocardial infarction [Not Recovered/Not Resolved]
